FAERS Safety Report 16739573 (Version 2)
Quarter: 2019Q3

REPORT INFORMATION
  Report Type: Spontaneous
  Country: FR (occurrence: FR)
  Receive Date: 20190826
  Receipt Date: 20190906
  Transmission Date: 20191005
  Serious: Yes (Death)
  Sender: FDA-Public Use
  Company Number: FR-SUN PHARMACEUTICAL INDUSTRIES LTD-2019RR-218700

PATIENT
  Age: 78 Year
  Sex: Male

DRUGS (13)
  1. ESOMEPRAZOLE. [Concomitant]
     Active Substance: ESOMEPRAZOLE MAGNESIUM
     Indication: PRODUCT USED FOR UNKNOWN INDICATION
     Dosage: 40 MILLIGRAM, DAILY
     Route: 048
  2. ALFUZOSINE (CHLORHYDRATE D^) [Concomitant]
     Active Substance: ALFUZOSIN HYDROCHLORIDE
     Indication: PRODUCT USED FOR UNKNOWN INDICATION
     Dosage: 1 DOSAGE FORM, DAILY
     Route: 048
  3. DICLOFENAC [Suspect]
     Active Substance: DICLOFENAC
     Indication: PRODUCT USED FOR UNKNOWN INDICATION
     Dosage: 2 DOSAGE FORM, DAILY
     Route: 048
  4. VENTOLINE [Concomitant]
     Active Substance: ALBUTEROL
     Indication: PRODUCT USED FOR UNKNOWN INDICATION
     Dosage: ()
     Route: 055
  5. ALDACTONE [Suspect]
     Active Substance: SPIRONOLACTONE
     Indication: HYPERTENSION
     Dosage: 1 DOSAGE FORM, DAILY
     Route: 048
  6. NOCTAMIDE 2 MG, COMPRIME SECABLE [Concomitant]
     Active Substance: LORMETAZEPAM
     Indication: PRODUCT USED FOR UNKNOWN INDICATION
     Dosage: 1 DOSAGE FORM, DAILY
     Route: 048
  7. ATARAX [Concomitant]
     Active Substance: HYDROXYZINE HYDROCHLORIDE
     Indication: PRODUCT USED FOR UNKNOWN INDICATION
     Dosage: 1 DOSAGE FORM, DAILY
     Route: 048
  8. PERMIXON 160 MG, GELULE [Concomitant]
     Active Substance: HERBALS\SAW PALMETTO
     Indication: PRODUCT USED FOR UNKNOWN INDICATION
     Dosage: 1 DOSAGE FORM, DAILY
     Route: 048
  9. LEXOMIL 12 MG, COMPRIME [Concomitant]
     Active Substance: BROMAZEPAM
     Indication: PRODUCT USED FOR UNKNOWN INDICATION
     Dosage: ()
     Route: 048
  10. FENOFIBRATE. [Concomitant]
     Active Substance: FENOFIBRATE
     Indication: PRODUCT USED FOR UNKNOWN INDICATION
     Dosage: NR ()
     Route: 048
  11. RAMIPRIL. [Suspect]
     Active Substance: RAMIPRIL
     Indication: HYPERTENSION
     Dosage: 10 MILLIGRAM, DAILY
     Route: 048
  12. ULTIBRO BREEZHALER [Concomitant]
     Active Substance: GLYCOPYRRONIUM\INDACATEROL
     Indication: PRODUCT USED FOR UNKNOWN INDICATION
     Dosage: ()
     Route: 055
  13. COAPROVEL 150 MG/12,5 MG, COMPRIME [Suspect]
     Active Substance: HYDROCHLOROTHIAZIDE\IRBESARTAN
     Indication: HYPERTENSION
     Dosage: 1 DOSAGE FORM, DAILY
     Route: 048

REACTIONS (1)
  - Acute kidney injury [Recovered/Resolved]

NARRATIVE: CASE EVENT DATE: 20190511
